FAERS Safety Report 9838770 (Version 1)
Quarter: 2014Q1

REPORT INFORMATION
  Report Type: Spontaneous
  Country: FR (occurrence: FR)
  Receive Date: 20140123
  Receipt Date: 20140123
  Transmission Date: 20141002
  Serious: Yes (Other)
  Sender: FDA-Public Use
  Company Number: FR-TEVA-457426USA

PATIENT
  Sex: Male

DRUGS (2)
  1. BENDAMUSTINE [Suspect]
     Indication: MANTLE CELL LYMPHOMA
     Dosage: DAY 1 AND DAY 2
     Route: 065
     Dates: start: 201312
  2. RITUXIMAB [Concomitant]
     Indication: MANTLE CELL LYMPHOMA
     Dosage: UNKNOWN/D
     Route: 065
     Dates: start: 201312

REACTIONS (2)
  - Acute coronary syndrome [Recovered/Resolved]
  - Off label use [Not Recovered/Not Resolved]
